FAERS Safety Report 23816105 (Version 1)
Quarter: 2024Q2

REPORT INFORMATION
  Report Type: Spontaneous
  Country: FR (occurrence: FR)
  Receive Date: 20240503
  Receipt Date: 20240503
  Transmission Date: 20240717
  Serious: Yes (Other)
  Sender: FDA-Public Use
  Company Number: None

PATIENT
  Age: 58 Year
  Sex: Male
  Weight: 59 kg

DRUGS (5)
  1. DOXORUBICIN [Suspect]
     Active Substance: DOXORUBICIN
     Indication: Leiomyosarcoma
     Dosage: 1FP
     Route: 042
     Dates: start: 20240103, end: 20240103
  2. ACETAMINOPHEN [Concomitant]
     Active Substance: ACETAMINOPHEN
     Indication: Neuralgia
     Dosage: UNKNOWN DOSE
     Route: 048
  3. VENLAFAXINE [Suspect]
     Active Substance: VENLAFAXINE HYDROCHLORIDE
     Indication: Neuralgia
     Dosage: GENERIQUES LP
     Route: 048
     Dates: end: 20240105
  4. DACARBAZINE [Suspect]
     Active Substance: DACARBAZINE
     Indication: Leiomyosarcoma
     Route: 042
     Dates: start: 20240103, end: 20240103
  5. ESOMEPRAZOLE [Suspect]
     Active Substance: ESOMEPRAZOLE
     Indication: Gastrooesophageal reflux disease
     Route: 048
     Dates: end: 20240105

REACTIONS (1)
  - Hepatic cytolysis [Recovered/Resolved]

NARRATIVE: CASE EVENT DATE: 20240105
